FAERS Safety Report 21046201 (Version 19)
Quarter: 2025Q2

REPORT INFORMATION
  Report Type: Report from Study
  Country: US (occurrence: US)
  Receive Date: 20220706
  Receipt Date: 20250606
  Transmission Date: 20250717
  Serious: Yes (Other)
  Sender: TAKEDA
  Company Number: US-TAKEDA-2022TUS044794

PATIENT
  Age: 65 Year
  Sex: Female
  Weight: 69 kg

DRUGS (46)
  1. HUMAN IMMUNOGLOBULIN G [Suspect]
     Active Substance: HUMAN IMMUNOGLOBULIN G
     Indication: Immunodeficiency
     Dosage: 25 GRAM, Q4WEEKS
  2. HUMAN IMMUNOGLOBULIN G [Suspect]
     Active Substance: HUMAN IMMUNOGLOBULIN G
     Indication: Immunodeficiency common variable
     Dosage: 30 GRAM, Q4WEEKS
  3. CANNABIS SATIVA SUBSP. INDICA TOP [Suspect]
     Active Substance: CANNABIS SATIVA SUBSP. INDICA TOP
     Indication: Product used for unknown indication
  4. DIPHENHYDRAMINE [Concomitant]
     Active Substance: DIPHENHYDRAMINE
  5. ALBUTEROL SULFATE [Concomitant]
     Active Substance: ALBUTEROL SULFATE
  6. NORVASC [Concomitant]
     Active Substance: AMLODIPINE BESYLATE
  7. METHYLPREDNISOLONE [Concomitant]
     Active Substance: METHYLPREDNISOLONE
  8. ZOLOFT [Concomitant]
     Active Substance: SERTRALINE HYDROCHLORIDE
  9. EPINEPHRINE [Concomitant]
     Active Substance: EPINEPHRINE
  10. SODIUM CHLORIDE [Concomitant]
     Active Substance: SODIUM CHLORIDE
  11. SPIRIVA [Concomitant]
     Active Substance: TIOTROPIUM BROMIDE MONOHYDRATE
  12. ROBAXIN [Concomitant]
     Active Substance: METHOCARBAMOL
  13. IRON [Concomitant]
     Active Substance: IRON
  14. OLOPATADINE HYDROCHLORIDE [Concomitant]
     Active Substance: OLOPATADINE HYDROCHLORIDE
  15. ASPIRIN [Concomitant]
     Active Substance: ASPIRIN
  16. QUETIAPINE FUMARATE [Concomitant]
     Active Substance: QUETIAPINE FUMARATE
  17. ACETAMINOPHEN [Concomitant]
     Active Substance: ACETAMINOPHEN
  18. METFORMIN HYDROCHLORIDE [Concomitant]
     Active Substance: METFORMIN HYDROCHLORIDE
  19. DICLOFENAC SODIUM [Concomitant]
     Active Substance: DICLOFENAC SODIUM
  20. CLONAZEPAM [Concomitant]
     Active Substance: CLONAZEPAM
  21. GABAPENTIN [Concomitant]
     Active Substance: GABAPENTIN
  22. SERTRALINE HYDROCHLORIDE [Concomitant]
     Active Substance: SERTRALINE HYDROCHLORIDE
  23. CRESTOR [Concomitant]
     Active Substance: ROSUVASTATIN CALCIUM
  24. ROSUVASTATIN CALCIUM [Concomitant]
     Active Substance: ROSUVASTATIN CALCIUM
  25. VITAMIN B [Concomitant]
     Active Substance: VITAMIN B
  26. VITAMIN C [Concomitant]
     Active Substance: ASCORBIC ACID
  27. NORCO [Concomitant]
     Active Substance: ACETAMINOPHEN\HYDROCODONE BITARTRATE
  28. INCRUSE ELLIPTA [Concomitant]
     Active Substance: UMECLIDINIUM BROMIDE
  29. PROTONIX [Concomitant]
     Active Substance: PANTOPRAZOLE SODIUM
  30. LISINOPRIL [Concomitant]
     Active Substance: LISINOPRIL
  31. LIDOCAINE [Concomitant]
     Active Substance: LIDOCAINE
  32. ADVAIR HFA [Concomitant]
     Active Substance: FLUTICASONE PROPIONATE\SALMETEROL XINAFOATE
  33. AMLODIPINE BESYLATE [Concomitant]
     Active Substance: AMLODIPINE BESYLATE
  34. MELATONIN [Concomitant]
     Active Substance: MELATONIN
  35. LEVOFLOXACIN [Concomitant]
     Active Substance: LEVOFLOXACIN
  36. IPRATROPIUM BROMIDE AND ALBUTEROL SULFATE [Concomitant]
     Active Substance: ALBUTEROL SULFATE\IPRATROPIUM BROMIDE
  37. AMITRIPTYLINE HYDROCHLORIDE [Concomitant]
     Active Substance: AMITRIPTYLINE HYDROCHLORIDE
  38. TRELEGY ELLIPTA [Concomitant]
     Active Substance: FLUTICASONE FUROATE\UMECLIDINIUM BROMIDE\VILANTEROL TRIFENATATE
  39. LEVOCETIRIZINE DIHYDROCHLORIDE [Concomitant]
     Active Substance: LEVOCETIRIZINE DIHYDROCHLORIDE
  40. METHOCARBAMOL [Concomitant]
     Active Substance: METHOCARBAMOL
  41. CYANOCOBALAMIN [Concomitant]
     Active Substance: CYANOCOBALAMIN
  42. EPIPEN [Concomitant]
     Active Substance: EPINEPHRINE
  43. OXYGEN [Concomitant]
     Active Substance: OXYGEN
  44. MONTELUKAST SODIUM [Concomitant]
     Active Substance: MONTELUKAST SODIUM
  45. PREDNISONE [Concomitant]
     Active Substance: PREDNISONE
  46. ALBUTEROL\IPRATROPIUM [Concomitant]
     Active Substance: ALBUTEROL\IPRATROPIUM

REACTIONS (19)
  - Fungal pharyngitis [Unknown]
  - Pneumonia [Not Recovered/Not Resolved]
  - Respiratory tract infection [Unknown]
  - Respiratory tract congestion [Unknown]
  - Bronchial irritation [Not Recovered/Not Resolved]
  - Arteriosclerosis [Unknown]
  - Obstruction [Unknown]
  - Ear discomfort [Unknown]
  - Illness [Unknown]
  - Seasonal allergy [Unknown]
  - Dry eye [Unknown]
  - Swelling face [Unknown]
  - Sinusitis [Recovering/Resolving]
  - Upper respiratory tract infection [Not Recovered/Not Resolved]
  - Wheezing [Unknown]
  - Decreased appetite [Unknown]
  - Cough [Unknown]
  - Malaise [Unknown]
  - Headache [Unknown]

NARRATIVE: CASE EVENT DATE: 20220817
